FAERS Safety Report 22400929 (Version 1)
Quarter: 2023Q2

REPORT INFORMATION
  Report Type: Spontaneous
  Country: US (occurrence: None)
  Receive Date: 20230601
  Receipt Date: 20230601
  Transmission Date: 20230721
  Serious: Yes (Other)
  Sender: FDA-Public Use
  Company Number: None

PATIENT
  Age: 70 Year
  Sex: Female
  Weight: 44.0 kg

DRUGS (6)
  1. CLOBAZAM [Suspect]
     Active Substance: CLOBAZAM
     Indication: Seizure
     Dosage: OTHER QUANTITY : 1/2 TABLET;?FREQUENCY : TWICE A DAY;?
     Route: 048
     Dates: start: 20230513, end: 20230515
  2. CALCIUM [Concomitant]
     Active Substance: CALCIUM
  3. LEVETIRACETAM [Concomitant]
     Active Substance: LEVETIRACETAM
  4. ETHOSUXIMIDE [Concomitant]
     Active Substance: ETHOSUXIMIDE
  5. ZONISAMIDE [Concomitant]
     Active Substance: ZONISAMIDE
  6. TOPIRAMATE [Concomitant]
     Active Substance: TOPIRAMATE

REACTIONS (4)
  - Abdominal pain upper [None]
  - Diarrhoea [None]
  - Weight decreased [None]
  - Bedridden [None]

NARRATIVE: CASE EVENT DATE: 20230513
